FAERS Safety Report 4535260-X (Version None)
Quarter: 2004Q4

REPORT INFORMATION
  Report Type: 
  Country: None (occurrence: None)
  Receive Date: 20041214
  Receipt Date: 20041026
  Transmission Date: 20050328
  Serious: No
  Sender: FDA-Public Use
  Company Number: 2004243609US

PATIENT
  Age: 38 Year
  Sex: Female
  Weight: 72.6 kg

DRUGS (5)
  1. BEXTRA [Suspect]
     Indication: ARTHRITIS
     Dosage: 10 MG, BID, ORAL
     Route: 048
     Dates: start: 20041001, end: 20041001
  2. CELEBREX [Suspect]
     Indication: ARTHRITIS
     Dosage: 200 MG, BID, ORAL
     Route: 048
     Dates: start: 20041001
  3. NYSTATIN [Concomitant]
  4. ADDERALL (DEXAMFETAMINE SULFATE, AMFETAMINE SULFATE, DEXAMFETAMINE SAC [Concomitant]
  5. ACTONEL [Concomitant]

REACTIONS (3)
  - BACK PAIN [None]
  - KIDNEY INFECTION [None]
  - RENAL PAIN [None]
